FAERS Safety Report 26063748 (Version 2)
Quarter: 2025Q4

REPORT INFORMATION
  Report Type: Spontaneous
  Country: EU (occurrence: EU)
  Receive Date: 20251119
  Receipt Date: 20251221
  Transmission Date: 20260118
  Serious: Yes (Hospitalization, Other)
  Sender: IDORSIA PHARMACEUTICALS
  Company Number: EU-IDORSIA-012533-2025-DE

PATIENT
  Age: 86 Year
  Sex: Male

DRUGS (5)
  1. QUVIVIQ [Suspect]
     Active Substance: DARIDOREXANT
     Indication: Sleep disorder
     Dosage: 50 MG, QD IN THE EVENING
     Route: 065
     Dates: start: 202410, end: 202411
  2. RISPERIDONE [Concomitant]
     Active Substance: RISPERIDONE
     Indication: Cerebral disorder
  3. VITAMIN B12 [Concomitant]
     Active Substance: CYANOCOBALAMIN
  4. FOLIC ACID [Concomitant]
     Active Substance: FOLIC ACID
  5. MELPERONE [Concomitant]
     Active Substance: MELPERONE
     Dosage: UNK, PRN

REACTIONS (5)
  - Unresponsive to stimuli [Recovered/Resolved]
  - Pneumonia [Recovered/Resolved]
  - Pyrexia [Recovered/Resolved]
  - Nasopharyngitis [Recovered/Resolved]
  - Disorganised speech [Recovered/Resolved]

NARRATIVE: CASE EVENT DATE: 20241101
